FAERS Safety Report 6811209-1 (Version None)
Quarter: 2010Q2

REPORT INFORMATION
  Report Type: 
  Country: None (occurrence: None)
  Receive Date: 20100630
  Receipt Date: 20090804
  Transmission Date: 20101027
  Serious: No
  Sender: FDA-Public Use
  Company Number: US-AMGEN-KDL358941

PATIENT
  Weight: 40 kg

DRUGS (11)
  1. PROCRIT [Suspect]
     Indication: ANAEMIA OF MALIGNANT DISEASE
     Dates: start: 20090101
  2. LYRICA [Concomitant]
  3. IFOSFAMIDE [Concomitant]
  4. MESNA [Concomitant]
  5. LEVAQUIN [Concomitant]
  6. BACTRIM [Concomitant]
  7. ZOLOFT [Concomitant]
  8. ATIVAN [Concomitant]
  9. DEPO-PROVERA [Concomitant]
  10. PREMARIN [Concomitant]
  11. ZOFRAN [Concomitant]

REACTIONS (3)
  - ARTHRALGIA [None]
  - BONE PAIN [None]
  - HAEMOGLOBIN DECREASED [None]
